FAERS Safety Report 10366158 (Version 1)
Quarter: 2014Q1

REPORT INFORMATION
  Report Type: Spontaneous
  Country: US (occurrence: None)
  Receive Date: 20140306
  Receipt Date: 20140306
  Transmission Date: 20141002
  Serious: Yes (Hospitalization)
  Sender: FDA-Public Use
  Company Number: 163-21880-13022504

PATIENT
  Age: 74 Year
  Sex: Male
  Weight: 78.93 kg

DRUGS (1)
  1. REVLIMID [Suspect]
     Indication: PLASMA CELL MYELOMA
     Dosage: 25 MG, 1 IN 1 D, PO 11/ 2012 - HELD  THERAPY DATES
     Route: 048
     Dates: start: 201211

REACTIONS (3)
  - Urinary tract infection [None]
  - Cough [None]
  - Abdominal discomfort [None]
